FAERS Safety Report 10017182 (Version 1)
Quarter: 2014Q1

REPORT INFORMATION
  Report Type: Spontaneous
  Country: US (occurrence: US)
  Receive Date: 20140318
  Receipt Date: 20140318
  Transmission Date: 20141002
  Serious: Yes (Other)
  Sender: FDA-Public Use
  Company Number: US-TEVA-468381USA

PATIENT
  Sex: Male

DRUGS (2)
  1. CICLOSPORIN [Suspect]
  2. SIMVASTATIN [Suspect]

REACTIONS (3)
  - Renal failure [Unknown]
  - Myalgia [Unknown]
  - Pain [Unknown]
